FAERS Safety Report 4691141-2 (Version None)
Quarter: 2005Q2

REPORT INFORMATION
  Report Type: 
  Country: None (occurrence: None)
  Receive Date: 20050610
  Receipt Date: 20050510
  Transmission Date: 20051028
  Serious: Yes (Hospitalization)
  Sender: FDA-Public Use
  Company Number: 8010583

PATIENT
  Age: 24 Year
  Sex: Male

DRUGS (2)
  1. KEPPRA [Suspect]
     Indication: EPILEPSY
     Dosage: 500 MG 1/ D PO
     Route: 048
     Dates: start: 20050502, end: 20050503
  2. TOPAMAX [Concomitant]

REACTIONS (5)
  - DIZZINESS [None]
  - PALLOR [None]
  - PALPITATIONS [None]
  - SYSTOLIC HYPERTENSION [None]
  - TACHYCARDIA [None]
